FAERS Safety Report 16112775 (Version 2)
Quarter: 2019Q1

REPORT INFORMATION
  Report Type: Report from Study
  Country: FI (occurrence: FI)
  Receive Date: 20190325
  Receipt Date: 20190328
  Transmission Date: 20190418
  Serious: Yes (Other)
  Sender: FDA-Public Use
  Company Number: FI-MYLANLABS-2019M1026824

PATIENT
  Age: 42 Year
  Sex: Male

DRUGS (3)
  1. LEPONEX [Suspect]
     Active Substance: CLOZAPINE
     Dosage: 500 MILLIGRAM, QD
     Dates: start: 2019
  2. LEPONEX [Suspect]
     Active Substance: CLOZAPINE
     Indication: SCHIZOPHRENIA
     Dosage: UNK
  3. ARIPIPRAZOLE. [Concomitant]
     Active Substance: ARIPIPRAZOLE
     Indication: PRODUCT USED FOR UNKNOWN INDICATION
     Dosage: 30 MILLIGRAM, QD
     Dates: start: 201009

REACTIONS (3)
  - Heart rate increased [Unknown]
  - Electrocardiogram QT prolonged [Unknown]
  - Therapeutic response decreased [Unknown]

NARRATIVE: CASE EVENT DATE: 2019
